FAERS Safety Report 24867936 (Version 1)
Quarter: 2025Q1

REPORT INFORMATION
  Report Type: Spontaneous
  Country: US (occurrence: None)
  Receive Date: 20250117
  Receipt Date: 20250117
  Transmission Date: 20250408
  Serious: Yes (Life-Threatening, Hospitalization)
  Sender: FDA-CTU
  Company Number: None

PATIENT
  Age: 57 Year
  Sex: Female
  Weight: 77.85 kg

DRUGS (1)
  1. TRUQAP [Suspect]
     Active Substance: CAPIVASERTIB
     Indication: Breast cancer
     Dosage: 400 MG TWICE A DAY ORAL
     Route: 048
     Dates: start: 20241218

REACTIONS (1)
  - Hyperglycaemic hyperosmolar nonketotic syndrome [None]

NARRATIVE: CASE EVENT DATE: 20250111
